FAERS Safety Report 21620669 (Version 1)
Quarter: 2022Q4

REPORT INFORMATION
  Report Type: Spontaneous
  Country: US (occurrence: US)
  Receive Date: 20221121
  Receipt Date: 20221121
  Transmission Date: 20230113
  Serious: Yes (Other)
  Sender: FDA-Public Use
  Company Number: US-BRISTOL-MYERS SQUIBB COMPANY-2022-137618

PATIENT
  Age: 75 Year
  Sex: Female

DRUGS (1)
  1. REVLIMID [Suspect]
     Active Substance: LENALIDOMIDE
     Indication: Plasma cell myeloma
     Dosage: 25MG DAILY FOR 21 DAYS
     Route: 048
     Dates: start: 202003

REACTIONS (2)
  - Hallucination, visual [Unknown]
  - COVID-19 [Unknown]

NARRATIVE: CASE EVENT DATE: 20221017
